FAERS Safety Report 9753199 (Version 1)
Quarter: 2013Q4

REPORT INFORMATION
  Report Type: Spontaneous
  Country: US (occurrence: US)
  Receive Date: 20131213
  Receipt Date: 20131213
  Transmission Date: 20140711
  Serious: No
  Sender: FDA-Public Use
  Company Number: US-GILEAD-2010-0027355

PATIENT
  Age: 58 Year
  Sex: Male

DRUGS (7)
  1. LETAIRIS [Suspect]
     Indication: PULMONARY ARTERIAL HYPERTENSION
     Route: 048
     Dates: start: 20100220
  2. WARFARIN [Concomitant]
     Indication: ANTICOAGULANT THERAPY
  3. FUROSEMIDE [Concomitant]
     Indication: POLYURIA
  4. COMBIVIR [Concomitant]
     Indication: HIV INFECTION
  5. VIRAMUNE [Concomitant]
     Indication: HIV INFECTION
  6. VALTREX [Concomitant]
     Indication: ANTIVIRAL PROPHYLAXIS
  7. FAMOTIDINE [Concomitant]
     Indication: GASTROOESOPHAGEAL REFLUX DISEASE

REACTIONS (4)
  - Dizziness [Not Recovered/Not Resolved]
  - Abdominal distension [Not Recovered/Not Resolved]
  - Headache [Not Recovered/Not Resolved]
  - Dyspnoea [Not Recovered/Not Resolved]
